FAERS Safety Report 7487149-4 (Version None)
Quarter: 2011Q2

REPORT INFORMATION
  Report Type: 
  Country: None (occurrence: None)
  Receive Date: 20110518
  Receipt Date: 20110505
  Transmission Date: 20111010
  Serious: Yes (Other)
  Sender: FDA-Public Use
  Company Number: BR-RANBAXY-2011R5-44224

PATIENT

DRUGS (3)
  1. SERTRALINE HYDROCHLORIDE [Suspect]
     Indication: PANIC DISORDER
     Dosage: 50 MG, QD
     Route: 048
     Dates: start: 20110301, end: 20110423
  2. SERTRALINE HYDROCHLORIDE [Suspect]
     Indication: ANXIETY
  3. ALLESTRA [Concomitant]
     Indication: CONTRACEPTION
     Dosage: UNK
     Route: 065

REACTIONS (4)
  - MALAISE [None]
  - PANIC ATTACK [None]
  - TACHYCARDIA [None]
  - DRUG INEFFECTIVE [None]
